FAERS Safety Report 20516451 (Version 1)
Quarter: 2022Q1

REPORT INFORMATION
  Report Type: Spontaneous
  Country: US (occurrence: US)
  Receive Date: 20220225
  Receipt Date: 20220225
  Transmission Date: 20220423
  Serious: Yes (Hospitalization, Other)
  Sender: FDA-Public Use
  Company Number: US-APOTEX-2022AP003793

PATIENT
  Age: 40 Year
  Sex: Female

DRUGS (1)
  1. CARBAMAZEPINE [Suspect]
     Active Substance: CARBAMAZEPINE
     Indication: Trigeminal neuralgia
     Dosage: 400 MILLIGRAM, BID
     Route: 048

REACTIONS (12)
  - Dysmetria [Recovered/Resolved]
  - Sensory loss [Recovered/Resolved]
  - Anxiety [Recovered/Resolved]
  - Drug level increased [Recovering/Resolving]
  - Gait disturbance [Recovered/Resolved]
  - Musculoskeletal disorder [Recovered/Resolved]
  - Toxicity to various agents [Recovering/Resolving]
  - Electrocardiogram T wave inversion [Unknown]
  - Ataxia [Recovered/Resolved]
  - Confusional state [Recovered/Resolved]
  - Dizziness [Recovered/Resolved]
  - Dysarthria [Recovered/Resolved]
